FAERS Safety Report 8082978-0 (Version None)
Quarter: 2012Q1

REPORT INFORMATION
  Report Type: 
  Country: None (occurrence: None)
  Receive Date: 20120127
  Receipt Date: 20110316
  Transmission Date: 20120608
  Serious: No
  Sender: FDA-Public Use
  Company Number: US-ABBOTT-11P-163-0710385-00

PATIENT
  Age: 56 Year
  Sex: Male

DRUGS (5)
  1. HUMIRA [Suspect]
     Indication: PSORIATIC ARTHROPATHY
  2. DYAZIDE [Concomitant]
     Indication: HYPERTENSION
     Dosage: 35.5 MD DAILY
     Route: 048
  3. ANSAID [Concomitant]
     Indication: RHEUMATOID ARTHRITIS
     Dosage: UP TO 3 TIMES A DAY AS NEEDED
     Route: 048
  4. CLONAZEPAM [Concomitant]
     Indication: ANXIETY
     Route: 048
  5. HUMIRA [Suspect]
     Indication: RHEUMATOID ARTHRITIS
     Dates: start: 20110309

REACTIONS (9)
  - INJECTION SITE PAIN [None]
  - WRONG TECHNIQUE IN DRUG USAGE PROCESS [None]
  - INCORRECT DOSE ADMINISTERED [None]
  - ERYTHEMA [None]
  - ARTHRALGIA [None]
  - INJECTION SITE HAEMORRHAGE [None]
  - DIZZINESS [None]
  - HEADACHE [None]
  - FEELING HOT [None]
